FAERS Safety Report 5376718-3 (Version None)
Quarter: 2007Q2

REPORT INFORMATION
  Report Type: 
  Country: None (occurrence: None)
  Receive Date: 20070629
  Receipt Date: 20070629
  Transmission Date: 20071010
  Serious: No
  Sender: FDA-Public Use
  Company Number: None

PATIENT
  Sex: Female
  Weight: 66.6788 kg

DRUGS (1)
  1. DEPO-PROVERA [Suspect]
     Indication: CONTRACEPTION
     Dosage: INJECTION EVERY THREE MONTHS IM
     Route: 030
     Dates: start: 19950720, end: 19971220

REACTIONS (5)
  - AMENORRHOEA [None]
  - BONE DENSITY DECREASED [None]
  - DISTURBANCE IN SEXUAL AROUSAL [None]
  - HAIR GROWTH ABNORMAL [None]
  - OSTEOPENIA [None]
